FAERS Safety Report 9699865 (Version 3)
Quarter: 2013Q4

REPORT INFORMATION
  Report Type: Spontaneous
  Country: US (occurrence: US)
  Receive Date: 20131121
  Receipt Date: 20131216
  Transmission Date: 20140711
  Serious: Yes (Other)
  Sender: FDA-Public Use
  Company Number: US-AMGEN-USASP2013081640

PATIENT
  Age: 33 Year
  Sex: Female

DRUGS (14)
  1. ENBREL [Suspect]
     Indication: PSORIASIS
     Dosage: 50 MG, 2 TIMES/WK
     Route: 065
     Dates: start: 201311
  2. IRON [Concomitant]
     Dosage: UNK
  3. FOLIC ACID [Concomitant]
     Dosage: UNK
  4. LASIX                              /00032601/ [Concomitant]
     Dosage: UNK
  5. ATARAX                             /00058401/ [Concomitant]
     Dosage: UNK
  6. ALDARA [Concomitant]
     Dosage: UNK
  7. ATIVAN [Concomitant]
     Dosage: UNK
  8. CORGARD [Concomitant]
     Dosage: UNK
  9. ZOFRAN                             /00955301/ [Concomitant]
     Dosage: UNK
  10. PROTONIX [Concomitant]
     Dosage: UNK
  11. VITAMIN K                          /00032401/ [Concomitant]
     Dosage: UNK
  12. XIFAXAN [Concomitant]
     Dosage: UNK
  13. ALDACTONE                          /00006201/ [Concomitant]
     Dosage: UNK
  14. TRIAMCINOLONE [Concomitant]
     Dosage: UNK

REACTIONS (13)
  - Hepatic cirrhosis [Not Recovered/Not Resolved]
  - Tunnel vision [Recovered/Resolved]
  - Ascites [Not Recovered/Not Resolved]
  - Tremor [Recovered/Resolved]
  - Headache [Recovered/Resolved]
  - Skin tightness [Not Recovered/Not Resolved]
  - Dry skin [Not Recovered/Not Resolved]
  - Erythema [Not Recovered/Not Resolved]
  - Skin atrophy [Not Recovered/Not Resolved]
  - Arthralgia [Not Recovered/Not Resolved]
  - Joint swelling [Not Recovered/Not Resolved]
  - Psoriasis [Not Recovered/Not Resolved]
  - Injection site pain [Recovered/Resolved]
